FAERS Safety Report 5914049-0 (Version None)
Quarter: 2008Q4

REPORT INFORMATION
  Report Type: 
  Country: None (occurrence: None)
  Receive Date: 20081009
  Receipt Date: 20081001
  Transmission Date: 20090506
  Serious: Yes (Death, Other)
  Sender: FDA-Public Use
  Company Number: -BAXTER-2008BH010492

PATIENT
  Sex: Male

DRUGS (1)
  1. REGLAN [Suspect]
     Indication: DRUG USE FOR UNKNOWN INDICATION
     Dosage: DOSE UNIT:UNKNOWN
     Dates: start: 20080707

REACTIONS (2)
  - CONDITION AGGRAVATED [None]
  - DEATH [None]
